FAERS Safety Report 8344106-3 (Version None)
Quarter: 2012Q2

REPORT INFORMATION
  Report Type: 
  Country: None (occurrence: None)
  Receive Date: 20120504
  Receipt Date: 20120218
  Transmission Date: 20120825
  Serious: Yes (Other)
  Sender: FDA-Public Use
  Company Number: 2012AP000445

PATIENT
  Age: 51 Year
  Sex: Male

DRUGS (4)
  1. GABAPENTIN [Suspect]
     Indication: OFF LABEL USE
  2. GABAPENTIN [Suspect]
     Indication: NEURALGIA
  3. NORTRIPTYLINE HCL [Suspect]
     Indication: NEURALGIA
     Dosage: 50 MG, HS
  4. BORTEZOMIB [Concomitant]

REACTIONS (9)
  - OFF LABEL USE [None]
  - AGITATION [None]
  - TREMOR [None]
  - DYSPNOEA [None]
  - HYPERHIDROSIS [None]
  - CONFUSIONAL STATE [None]
  - NAUSEA [None]
  - ORTHOSTATIC INTOLERANCE [None]
  - DIZZINESS [None]
